FAERS Safety Report 16166154 (Version 1)
Quarter: 2019Q2

REPORT INFORMATION
  Report Type: Spontaneous
  Country: FR (occurrence: FR)
  Receive Date: 20190406
  Receipt Date: 20190406
  Transmission Date: 20190711
  Serious: Yes (Hospitalization)
  Sender: FDA-Public Use
  Company Number: FR-ACCORD-118910

PATIENT
  Age: 33 Year
  Sex: Male
  Weight: 90 kg

DRUGS (11)
  1. PARACETAMOL [Concomitant]
     Active Substance: ACETAMINOPHEN
  2. TRAMADOL/TRAMADOL HYDROCHLORIDE [Concomitant]
  3. VANCOMYCIN SANDOZ [Suspect]
     Active Substance: VANCOMYCIN
     Indication: FEBRILE BONE MARROW APLASIA
     Route: 041
     Dates: start: 20180928, end: 20181008
  4. ALFUZOSIN/ALFUZOSIN HYDROCHLORIDE [Concomitant]
  5. RACECADOTRIL [Concomitant]
     Active Substance: RACECADOTRIL
  6. OXYBUTININE BMS [Concomitant]
     Active Substance: OXYBUTYNIN
  7. NEFOPAM/NEFOPAM HYDROCHLORIDE [Concomitant]
  8. METHOTREXATE. [Suspect]
     Active Substance: METHOTREXATE
     Indication: ACUTE MYELOID LEUKAEMIA
     Route: 037
     Dates: start: 20180927, end: 20180927
  9. GRANOCYTE [Suspect]
     Active Substance: LENOGRASTIM
     Indication: ACUTE MYELOID LEUKAEMIA
     Route: 041
     Dates: start: 20180929, end: 20181008
  10. IMIPENEM CILASTATINE MYLAN [Suspect]
     Active Substance: IMIPENEM
     Indication: FEBRILE BONE MARROW APLASIA
     Route: 041
     Dates: start: 20180928, end: 20181004
  11. POSACONAZOLE [Concomitant]
     Active Substance: POSACONAZOLE

REACTIONS (3)
  - Confusional state [Recovered/Resolved]
  - Loss of consciousness [Recovered/Resolved]
  - Aphasia [Recovered/Resolved]

NARRATIVE: CASE EVENT DATE: 20181004
